FAERS Safety Report 23883308 (Version 1)
Quarter: 2024Q2

REPORT INFORMATION
  Report Type: Spontaneous
  Country: US (occurrence: US)
  Receive Date: 20240522
  Receipt Date: 20240522
  Transmission Date: 20240716
  Serious: Yes (Disabling)
  Sender: FDA-Public Use
  Company Number: US-SA-SAC20240517001200

PATIENT
  Age: 59 Year
  Sex: Male

DRUGS (6)
  1. AUBAGIO [Suspect]
     Active Substance: TERIFLUNOMIDE
     Indication: Multiple sclerosis
     Dosage: 14 MG, QD
     Route: 048
  2. TEMAZEPAM [Concomitant]
     Active Substance: TEMAZEPAM
     Dosage: UNK
  3. DIAZEPAM [Concomitant]
     Active Substance: DIAZEPAM
     Dosage: UNK
  4. LORAZEPAM [Concomitant]
     Active Substance: LORAZEPAM
     Dosage: UNK
  5. TEMAZEPAM [Concomitant]
     Active Substance: TEMAZEPAM
     Dosage: UNK
  6. VENLAFAXINE [Concomitant]
     Active Substance: VENLAFAXINE HYDROCHLORIDE
     Dosage: UNK

REACTIONS (12)
  - Loss of personal independence in daily activities [Unknown]
  - Gait disturbance [Unknown]
  - Tremor [Unknown]
  - Restlessness [Unknown]
  - Photopsia [Unknown]
  - Depression [Unknown]
  - Balance disorder [Unknown]
  - Anxiety [Unknown]
  - Fall [Unknown]
  - Vitamin D increased [Unknown]
  - Limb discomfort [Unknown]
  - Alopecia [Unknown]

NARRATIVE: CASE EVENT DATE: 20240515
